FAERS Safety Report 9637668 (Version 1)
Quarter: 2013Q4

REPORT INFORMATION
  Report Type: Spontaneous
  Country: GB (occurrence: GB)
  Receive Date: 20131022
  Receipt Date: 20131022
  Transmission Date: 20140711
  Serious: Yes (Life-Threatening)
  Sender: FDA-Public Use
  Company Number: GB-PFIZER INC-2013297001

PATIENT
  Sex: 0

DRUGS (1)
  1. INLYTA [Suspect]
     Dosage: UNK

REACTIONS (2)
  - Thrombocytopenia [Unknown]
  - Off label use [Unknown]
